FAERS Safety Report 22390359 (Version 2)
Quarter: 2023Q4

REPORT INFORMATION
  Report Type: Other
  Country: DE (occurrence: DE)
  Receive Date: 20230531
  Receipt Date: 20231109
  Transmission Date: 20240109
  Serious: Yes (Other)
  Sender: FDA-Public Use
  Company Number: DE-ROCHE-3351398

PATIENT

DRUGS (10)
  1. TAFASITAMAB [Suspect]
     Active Substance: TAFASITAMAB
     Indication: Diffuse large B-cell lymphoma
     Dosage: SECOND LINE WITH LENALIDOMIDE
     Route: 065
     Dates: start: 20221025, end: 20230115
  2. RITUXIMAB [Suspect]
     Active Substance: RITUXIMAB
     Indication: Diffuse large B-cell lymphoma
     Dosage: THIRD LINE WITH POLATUZUMAB AND BENDAMUSTINE
     Route: 065
     Dates: start: 20230201, end: 20230512
  3. RITUXIMAB [Suspect]
     Active Substance: RITUXIMAB
     Dosage: FIRST LINE WITH CHOP
     Route: 065
     Dates: start: 20220511, end: 20221015
  4. LENALIDOMIDE [Suspect]
     Active Substance: LENALIDOMIDE
     Indication: Diffuse large B-cell lymphoma
     Dosage: SECOND LINE WITH TAFASITAMAB
     Route: 065
     Dates: start: 20221025, end: 20230115
  5. CYCLOPHOSPHAMIDE [Suspect]
     Active Substance: CYCLOPHOSPHAMIDE
     Indication: Diffuse large B-cell lymphoma
     Dosage: FIRST LINE WITH RITUXIMAB
     Route: 065
     Dates: start: 20220511, end: 20221015
  6. DOXORUBICIN [Suspect]
     Active Substance: DOXORUBICIN
     Indication: Diffuse large B-cell lymphoma
     Dosage: FIRST LINE WITH RITUXIMAB
     Route: 065
     Dates: start: 20220511, end: 20221015
  7. VINCRISTINE [Suspect]
     Active Substance: VINCRISTINE
     Indication: Diffuse large B-cell lymphoma
     Dosage: FIRST LINE WITH RITUXIMAB
     Route: 065
     Dates: start: 20220511, end: 20221015
  8. BENDAMUSTINE [Suspect]
     Active Substance: BENDAMUSTINE
     Indication: Diffuse large B-cell lymphoma
     Dosage: THIRD LINE WITH RITUXIMAB AND POLATUZUMAB
     Route: 065
     Dates: start: 20230201, end: 20230512
  9. POLATUZUMAB VEDOTIN [Suspect]
     Active Substance: POLATUZUMAB VEDOTIN
     Indication: Diffuse large B-cell lymphoma
     Dosage: THIRD LINE WITH RITUXIMAB AND BENDAMUSTINE
     Route: 065
     Dates: start: 20230201, end: 20230512
  10. PREDNISONE [Suspect]
     Active Substance: PREDNISONE
     Indication: Diffuse large B-cell lymphoma
     Dosage: FIRST LINE WITH RITUXIMAB
     Route: 065
     Dates: start: 20220511, end: 20221015

REACTIONS (1)
  - Lymphoma [Not Recovered/Not Resolved]
